FAERS Safety Report 4316782-3 (Version None)
Quarter: 2004Q1

REPORT INFORMATION
  Report Type: 
  Country: None (occurrence: None)
  Receive Date: 20040311
  Receipt Date: 20040302
  Transmission Date: 20041129
  Serious: Yes (Hospitalization, Other)
  Sender: FDA-Public Use
  Company Number: 2004-03-0177

PATIENT
  Age: 55 Year
  Sex: Male

DRUGS (4)
  1. PEG-INTRON [Suspect]
     Indication: HEPATITIS C
     Dosage: SUBCUTANEOUS
     Route: 058
  2. REBETOL [Suspect]
     Indication: HEPATITIS C
     Dosage: ORAL
     Route: 048
  3. EPOGEN [Concomitant]
  4. MOTRIN [Concomitant]

REACTIONS (4)
  - HAEMATEMESIS [None]
  - MYOCARDIAL INFARCTION [None]
  - PAIN [None]
  - TOOTH EXTRACTION [None]
